FAERS Safety Report 11874540 (Version 4)
Quarter: 2023Q4

REPORT INFORMATION
  Report Type: Spontaneous
  Country: FR (occurrence: FR)
  Receive Date: 20151229
  Receipt Date: 20231206
  Transmission Date: 20240109
  Serious: Yes (Hospitalization, Other)
  Sender: FDA-Public Use
  Company Number: FR-AUROBINDO-AUR-APL-2015-10456

PATIENT
  Age: 89 Year
  Sex: Male
  Weight: 69 kg

DRUGS (12)
  1. AMOXICILLIN\CLAVULANIC ACID [Interacting]
     Active Substance: AMOXICILLIN\CLAVULANIC ACID
     Indication: Antibiotic therapy
     Dosage: 1 GRAM, 3 TIMES A DAY
     Route: 048
     Dates: start: 20150218, end: 20150219
  2. AMOXICILLIN\CLAVULANIC ACID [Interacting]
     Active Substance: AMOXICILLIN\CLAVULANIC ACID
     Indication: Pneumonitis aspiration
     Dosage: SWITCHED
     Route: 048
     Dates: start: 20150219, end: 20150220
  3. AMOXICILLIN\CLAVULANIC ACID [Interacting]
     Active Substance: AMOXICILLIN\CLAVULANIC ACID
     Dosage: 1 GRAM, 3 TIMES A DAY (1G/8H FOR THE FIRST 24 HOURS)
     Route: 042
  4. FLUINDIONE [Interacting]
     Active Substance: FLUINDIONE
     Indication: Cardiovascular event prophylaxis
     Dosage: 15 MILLIGRAM, ONCE A DAY
     Route: 048
     Dates: end: 201502
  5. FLUINDIONE [Interacting]
     Active Substance: FLUINDIONE
     Indication: Cerebrovascular accident prophylaxis
     Dosage: 20 MILLIGRAM
     Route: 065
     Dates: start: 20150221
  6. FLUINDIONE [Interacting]
     Active Substance: FLUINDIONE
     Indication: Atrial fibrillation
  7. FLUINDIONE [Interacting]
     Active Substance: FLUINDIONE
     Indication: International normalised ratio increased
  8. ATORVASTATIN [Concomitant]
     Active Substance: ATORVASTATIN
     Indication: Product used for unknown indication
     Dosage: 40 MILLIGRAM, DAILY
     Route: 065
  9. DUTASTERIDE [Concomitant]
     Active Substance: DUTASTERIDE
     Indication: Product used for unknown indication
     Dosage: 0.5 MILLIGRAM, ONCE A DAY
     Route: 065
  10. PERINDOPRIL [Concomitant]
     Active Substance: PERINDOPRIL
     Indication: Product used for unknown indication
     Dosage: 2 MILLIGRAM, ONCE A DAY
     Route: 065
  11. VENLAFAXINE [Concomitant]
     Active Substance: VENLAFAXINE HYDROCHLORIDE
     Indication: Product used for unknown indication
     Dosage: 37.5 MILLIGRAM, DAILY
     Route: 065
  12. FUROSEMIDE [Concomitant]
     Active Substance: FUROSEMIDE
     Indication: Diuretic therapy
     Dosage: 40 MILLIGRAM, 3 TIMES A DAY (40 MG/8H)
     Route: 065
     Dates: start: 20150218

REACTIONS (6)
  - Coagulation time prolonged [Recovered/Resolved]
  - Haemoptysis [Recovered/Resolved]
  - International normalised ratio increased [Recovered/Resolved]
  - Potentiating drug interaction [Recovered/Resolved]
  - Drug interaction [Recovered/Resolved]
  - Overdose [Unknown]

NARRATIVE: CASE EVENT DATE: 20150201
